FAERS Safety Report 8590599-6 (Version None)
Quarter: 2012Q3

REPORT INFORMATION
  Report Type: 
  Country: None (occurrence: None)
  Receive Date: 20120813
  Receipt Date: 20120807
  Transmission Date: 20120928
  Serious: Yes (Other)
  Sender: FDA-Public Use
  Company Number: US-PFIZER INC-2012193316

PATIENT
  Age: 55 Year
  Sex: Male
  Weight: 113 kg

DRUGS (7)
  1. LYRICA [Suspect]
     Indication: NEUROPATHY PERIPHERAL
     Dosage: 400 MG, UNK
     Dates: start: 20050101
  2. LYRICA [Suspect]
     Indication: HYPOAESTHESIA
  3. WELLBUTRIN [Suspect]
     Indication: DEPRESSION
     Dosage: UNK
     Dates: start: 20050101
  4. LYRICA [Suspect]
     Indication: BURNING SENSATION
  5. CODEINE [Suspect]
     Indication: NERVE INJURY
     Dosage: UNK
  6. TRAMADOL [Concomitant]
     Indication: ARTHRITIS
     Dosage: UNK, 2X/DAY
  7. LYRICA [Suspect]
     Indication: PAIN
     Dosage: 300 MG, 2X/DAY

REACTIONS (8)
  - OEDEMA PERIPHERAL [None]
  - DRUG INEFFECTIVE FOR UNAPPROVED INDICATION [None]
  - OFF LABEL USE [None]
  - PAIN IN EXTREMITY [None]
  - NERVE INJURY [None]
  - SENSORY LOSS [None]
  - PAIN [None]
  - GUN SHOT WOUND [None]
